FAERS Safety Report 5154870-2 (Version None)
Quarter: 2006Q4

REPORT INFORMATION
  Report Type: 
  Country: None (occurrence: None)
  Receive Date: 20061121
  Receipt Date: 20061113
  Transmission Date: 20070319
  Serious: Yes (Other)
  Sender: FDA-Public Use
  Company Number: US-PURDUE-USA_2006_0025676

PATIENT
  Sex: Female

DRUGS (22)
  1. MORPHINE SULFATE [Suspect]
     Indication: PAIN
     Dosage: 160 MG, TID
     Dates: start: 20060401
  2. MORPHINE SULFATE [Suspect]
     Dosage: 30 MG, SEE TEXT
     Dates: start: 20060401
  3. METFORMIN [Concomitant]
  4. CYMBALTA [Concomitant]
  5. TOPROL-XL [Concomitant]
  6. TRICOR [Concomitant]
  7. TRAZODONE HCL [Concomitant]
  8. BENAZEPRIL HYDROCHLORIDE [Concomitant]
  9. HYDROCHLOROTHIAZIDE [Concomitant]
  10. SINGULAIR [Concomitant]
  11. PREVACID [Concomitant]
  12. LASIX [Concomitant]
  13. SYNTHROID [Concomitant]
  14. REGLAN [Concomitant]
  15. ESTRACE [Concomitant]
  16. XANAX [Concomitant]
  17. ZANAFLEX [Concomitant]
  18. LANTUS [Concomitant]
  19. HUMALOG [Concomitant]
  20. ALBUTEROL [Concomitant]
  21. ASPIRIN [Concomitant]
  22. NEURONTIN [Concomitant]

REACTIONS (6)
  - BREATH ODOUR [None]
  - CONSTIPATION [None]
  - ERUCTATION [None]
  - FLATULENCE [None]
  - GASTROINTESTINAL DISORDER [None]
  - INTESTINAL OBSTRUCTION [None]
